FAERS Safety Report 14170114 (Version 1)
Quarter: 2017Q4

REPORT INFORMATION
  Report Type: Spontaneous
  Country: GB (occurrence: GB)
  Receive Date: 20171108
  Receipt Date: 20171108
  Transmission Date: 20180321
  Serious: Yes (Disabling, Other)
  Sender: FDA-Public Use
  Company Number: GB-TEVA-820967ACC

PATIENT
  Age: 82 Year
  Sex: Female
  Weight: 55 kg

DRUGS (12)
  1. CYCLIZINE [Concomitant]
     Active Substance: CYCLIZINE
     Dosage: UP TO THREE TIMES A DAY WHEN NEEDED
     Dates: start: 20170714
  2. PARACETAMOL [Concomitant]
     Active Substance: ACETAMINOPHEN
     Dosage: EVERY 4 TO 6 HOURS WHEN NECES...
     Dates: start: 20170714
  3. SERTRALINE [Concomitant]
     Active Substance: SERTRALINE HYDROCHLORIDE
     Dosage: 1 DOSAGE FORMS DAILY;
     Dates: start: 20170120
  4. LEVOTHYROXINE. [Concomitant]
     Active Substance: LEVOTHYROXINE
     Dosage: 1 DOSAGE FORMS DAILY; EACH MORNING
     Dates: start: 20111026
  5. PROMETHAZINE HYDROCHLORIDE. [Concomitant]
     Active Substance: PROMETHAZINE HYDROCHLORIDE
     Dosage: TAKE 1-2 TABLETS TO BE TAKEN EACH NIGHT
     Dates: start: 20170808
  6. FERROUS FUMARATE [Concomitant]
     Active Substance: FERROUS FUMARATE
     Dosage: 3 DOSAGE FORMS DAILY;
     Dates: start: 20170824
  7. GAVISCON ADVANCE [Concomitant]
     Active Substance: POTASSIUM BICARBONATE\SODIUM ALGINATE
     Dosage: ONE OR TWO 5ML SPOONFULS TO BE TAKEN AFTER MEAL...
     Dates: start: 20170714, end: 20170720
  8. GABAPENTIN. [Suspect]
     Active Substance: GABAPENTIN
     Route: 065
     Dates: start: 20170731
  9. SENNA [Concomitant]
     Active Substance: SENNA LEAF\SENNOSIDES\SENNOSIDES A AND B
     Dosage: 2 DOSAGE FORMS DAILY; AT NIGHT
     Dates: start: 20170714
  10. BONJELA [Concomitant]
     Active Substance: CETALKONIUM CHLORIDE\CHOLINE SALICYLATE\MENTHOL
     Dosage: APPLY
     Dates: start: 20171003, end: 20171004
  11. MORPHINE SULFATE. [Concomitant]
     Active Substance: MORPHINE SULFATE
     Indication: PAIN
     Route: 048
     Dates: start: 20170714, end: 20170720
  12. NITROFURANTOIN. [Concomitant]
     Active Substance: NITROFURANTOIN
     Dosage: 2 DOSAGE FORMS DAILY;
     Dates: start: 20170813, end: 20170816

REACTIONS (1)
  - Nightmare [Recovered/Resolved]

NARRATIVE: CASE EVENT DATE: 20171018
